FAERS Safety Report 5256520-3 (Version None)
Quarter: 2007Q1

REPORT INFORMATION
  Report Type: 
  Country: None (occurrence: None)
  Receive Date: 20061220
  Receipt Date: 20061025
  Transmission Date: 20070707
  Serious: No
  Sender: FDA-Public Use
  Company Number: 2006RL000390

PATIENT
  Age: 45 Year
  Sex: Male
  Weight: 87.0906 kg

DRUGS (3)
  1. OMACOR [Suspect]
     Indication: DRUG USE FOR UNKNOWN INDICATION
     Dosage: SEE IMAGE
     Route: 048
     Dates: start: 20061009, end: 20061001
  2. OMACOR [Suspect]
     Indication: DRUG USE FOR UNKNOWN INDICATION
     Dosage: SEE IMAGE
     Route: 048
     Dates: start: 20061001
  3. ZYRTEC-D [Concomitant]

REACTIONS (1)
  - PAROSMIA [None]
